FAERS Safety Report 5523701-0 (Version None)
Quarter: 2007Q4

REPORT INFORMATION
  Report Type: 
  Country: None (occurrence: None)
  Receive Date: 20071121
  Receipt Date: 20071115
  Transmission Date: 20080405
  Serious: Yes (Death)
  Sender: FDA-Public Use
  Company Number: US-JNJFOC-20071106815

PATIENT
  Sex: Female
  Weight: 36.29 kg

DRUGS (4)
  1. RISPERDAL CONSTA [Suspect]
     Indication: ABNORMAL BEHAVIOUR
     Route: 042
  2. FENTANYL [Concomitant]
  3. FENTANYL [Concomitant]
  4. FENTANYL [Concomitant]
     Indication: BACK PAIN

REACTIONS (3)
  - CARDIAC FAILURE CONGESTIVE [None]
  - COMA [None]
  - MUSCLE RIGIDITY [None]
